FAERS Safety Report 9679499 (Version 1)
Quarter: 2013Q4

REPORT INFORMATION
  Report Type: Spontaneous
  Country: US (occurrence: US)
  Receive Date: 20131109
  Receipt Date: 20131109
  Transmission Date: 20140711
  Serious: No
  Sender: FDA-Public Use
  Company Number: US-SANOFI-AVENTIS-2013SA058768

PATIENT
  Age: 16 Year
  Sex: Male

DRUGS (1)
  1. ALLEGRA-D, 24 HR [Suspect]
     Indication: HYPERSENSITIVITY
     Dosage: 180 MG AND 240 MG
     Route: 048
     Dates: start: 20130531

REACTIONS (1)
  - Medication residue present [Unknown]
